FAERS Safety Report 11151719 (Version 2)
Quarter: 2015Q2

REPORT INFORMATION
  Report Type: Spontaneous
  Country: US (occurrence: None)
  Receive Date: 20150528
  Receipt Date: 20150603
  Transmission Date: 20150821
  Serious: Yes (Other)
  Sender: FDA-Public Use
  Company Number: 2015SCAL000222

PATIENT
  Sex: Male

DRUGS (3)
  1. LEVODOPA (LEVODOPA) [Suspect]
     Active Substance: LEVODOPA
     Indication: PARKINSON^S DISEASE
  2. DONEPEZIL HYDROCHLORIDE (DONEPEZIL HYDROCHLORIDE) UNKNOWN [Suspect]
     Active Substance: DONEPEZIL HYDROCHLORIDE
     Indication: COGNITIVE DISORDER
  3. ENTACAPONE. [Suspect]
     Active Substance: ENTACAPONE
     Indication: PARKINSON^S DISEASE

REACTIONS (2)
  - Neuroleptic malignant syndrome [None]
  - Drug interaction [None]
